FAERS Safety Report 6601576-6 (Version None)
Quarter: 2010Q1

REPORT INFORMATION
  Report Type: 
  Country: None (occurrence: None)
  Receive Date: 20100225
  Receipt Date: 20091210
  Transmission Date: 20100710
  Serious: No
  Sender: FDA-Public Use
  Company Number: US-KINGPHARMUSA00001-K200901549

PATIENT
  Age: 70 Year
  Sex: Male

DRUGS (3)
  1. FLECTOR [Suspect]
     Indication: TENDON INJURY
     Dosage: 1 PATCH, UNK
     Route: 061
     Dates: start: 20091201, end: 20091201
  2. COUMADIN [Concomitant]
     Dosage: UNK
  3. ASPIRIN [Concomitant]
     Dosage: UNK

REACTIONS (1)
  - COUGH [None]
